FAERS Safety Report 13818686 (Version 1)
Quarter: 2017Q3

REPORT INFORMATION
  Report Type: Report from Study
  Country: US (occurrence: US)
  Receive Date: 20170731
  Receipt Date: 20170731
  Transmission Date: 20171127
  Serious: No
  Sender: FDA-Public Use
  Company Number: US-EXELIXIS-CABO-17008315

PATIENT
  Age: 63 Year
  Sex: Male

DRUGS (7)
  1. PAROXETINE. [Concomitant]
     Active Substance: PAROXETINE
  2. HYDRZYZ [Concomitant]
  3. CLOBETASOL [Concomitant]
     Active Substance: CLOBETASOL
  4. CABOMETYX [Suspect]
     Active Substance: CABOZANTINIB S-MALATE
     Indication: BRONCHIAL CARCINOMA
  5. DESOXIMETASON [Concomitant]
  6. AMLODIPINE [Concomitant]
     Active Substance: AMLODIPINE BESYLATE
  7. CABOMETYX [Suspect]
     Active Substance: CABOZANTINIB S-MALATE
     Indication: BONE CANCER
     Dosage: 60 MG, QD
     Route: 048
     Dates: start: 20170210

REACTIONS (2)
  - Blister [Unknown]
  - Off label use [Unknown]

NARRATIVE: CASE EVENT DATE: 20170210
